FAERS Safety Report 23560199 (Version 2)
Quarter: 2024Q1

REPORT INFORMATION
  Report Type: Spontaneous
  Country: RU (occurrence: RU)
  Receive Date: 20240223
  Receipt Date: 20240329
  Transmission Date: 20240409
  Serious: Yes (Death, Other)
  Sender: FDA-Public Use
  Company Number: None

PATIENT
  Age: 54 Year
  Sex: Male
  Weight: 70 kg

DRUGS (3)
  1. ULTRAVIST [Suspect]
     Active Substance: IOPROMIDE
     Indication: Angiocardiogram
     Dosage: 20 ML, ONCE
     Route: 013
     Dates: start: 20240213, end: 20240213
  2. HEPARIN SODIUM [Concomitant]
     Active Substance: HEPARIN SODIUM
     Indication: Thrombosis prophylaxis
     Dosage: 5000 IU, ONCE
     Route: 013
     Dates: start: 20240213, end: 20240213
  3. LIDOCAINE [Concomitant]
     Active Substance: LIDOCAINE
     Indication: Local anaesthesia
     Dosage: 5 ML
     Route: 023
     Dates: start: 20240213, end: 20240213

REACTIONS (5)
  - Death [Fatal]
  - Bradycardia [None]
  - Hypotension [None]
  - Depressed level of consciousness [None]
  - Cardiac arrest [None]

NARRATIVE: CASE EVENT DATE: 20240213
